FAERS Safety Report 5563276-3 (Version None)
Quarter: 2007Q4

REPORT INFORMATION
  Report Type: 
  Country: None (occurrence: None)
  Receive Date: 20071211
  Receipt Date: 20071128
  Transmission Date: 20080405
  Serious: Yes (Other)
  Sender: FDA-Public Use
  Company Number: 17965

PATIENT
  Age: 42 Year
  Sex: Female
  Weight: 73 kg

DRUGS (3)
  1. METHOTREXATE [Suspect]
     Indication: ANKYLOSING SPONDYLITIS
     Dosage: 10 MG WEEKLY SC
     Route: 058
     Dates: start: 20070405, end: 20070806
  2. CO-DYDRAMIL [Concomitant]
  3. RANITIDINE HCL [Concomitant]

REACTIONS (3)
  - DIZZINESS [None]
  - DYSPHASIA [None]
  - VISION BLURRED [None]
